FAERS Safety Report 16095127 (Version 1)
Quarter: 2019Q2

REPORT INFORMATION
  Report Type: Spontaneous
  Country: US (occurrence: US)
  Receive Date: 20190320
  Receipt Date: 20190320
  Transmission Date: 20190711
  Serious: Yes (Other)
  Sender: FDA-Public Use
  Company Number: None

PATIENT
  Age: 50 Year
  Sex: Female
  Weight: 64.35 kg

DRUGS (6)
  1. PRAVASTATIN. [Concomitant]
     Active Substance: PRAVASTATIN
  2. BUPROPION. [Concomitant]
     Active Substance: BUPROPION
  3. BOTOX [Concomitant]
     Active Substance: ONABOTULINUMTOXINA
  4. HYDROCODONE PM [Concomitant]
  5. AJOVY [Suspect]
     Active Substance: FREMANEZUMAB-VFRM
     Indication: MIGRAINE
  6. TOPAMAX [Concomitant]
     Active Substance: TOPIRAMATE

REACTIONS (2)
  - Paraesthesia [None]
  - Alopecia [None]

NARRATIVE: CASE EVENT DATE: 20190228
